FAERS Safety Report 5717519-3 (Version None)
Quarter: 2008Q2

REPORT INFORMATION
  Report Type: 
  Country: None (occurrence: None)
  Receive Date: 20080425
  Receipt Date: 20080416
  Transmission Date: 20081010
  Serious: Yes (Hospitalization)
  Sender: FDA-Public Use
  Company Number: US-JNJFOC-20080405154

PATIENT
  Sex: Female
  Weight: 86.18 kg

DRUGS (8)
  1. DURAGESIC-100 [Suspect]
     Indication: PAIN
     Route: 062
  2. NEURONTIN [Concomitant]
     Indication: PAIN
     Dosage: 300MG TWO OR THREE TIMES A DAY
     Route: 048
  3. REQUIP [Concomitant]
     Indication: RESTLESS LEGS SYNDROME
     Route: 048
  4. PACERONE [Concomitant]
     Indication: CARDIAC DISORDER
     Route: 048
  5. PROTONIX [Concomitant]
     Indication: GASTROOESOPHAGEAL REFLUX DISEASE
     Route: 048
  6. THYROID TAB [Concomitant]
     Indication: HYPOTHYROIDISM
     Route: 048
  7. ZOLOFT [Concomitant]
     Indication: DEPRESSION
     Route: 048
  8. DARVOCET-N 100 [Concomitant]
     Indication: PAIN
     Dosage: 1/650 2 IN ONE DAY
     Route: 048

REACTIONS (4)
  - CARDIAC DISORDER [None]
  - DYSPNOEA [None]
  - KIDNEY INFECTION [None]
  - THROMBOSIS [None]
